FAERS Safety Report 18861823 (Version 17)
Quarter: 2022Q2

REPORT INFORMATION
  Report Type: Spontaneous
  Country: GB (occurrence: GB)
  Receive Date: 20210209
  Receipt Date: 20220531
  Transmission Date: 20220721
  Serious: Yes (Other)
  Sender: FDA-Public Use
  Company Number: GB-MHRA-EYC 00236686

PATIENT
  Age: 30 Year
  Sex: Male

DRUGS (14)
  1. QUETIAPINE [Suspect]
     Active Substance: QUETIAPINE
     Indication: Product used for unknown indication
     Dosage: UNK
     Route: 048
     Dates: start: 20201230, end: 20201230
  2. RISPERIDONE [Suspect]
     Active Substance: RISPERIDONE
     Indication: Product used for unknown indication
     Dosage: UNK
     Route: 042
     Dates: start: 20201229, end: 20201230
  3. RISPERIDONE [Suspect]
     Active Substance: RISPERIDONE
     Dosage: UNK
     Route: 048
     Dates: start: 20201229, end: 20201230
  4. ACETAMINOPHEN [Suspect]
     Active Substance: ACETAMINOPHEN
     Indication: Product used for unknown indication
     Dosage: UNK
     Route: 042
     Dates: start: 20201229, end: 20201230
  5. CYCLIZINE HYDROCHLORIDE [Suspect]
     Active Substance: CYCLIZINE HYDROCHLORIDE
     Indication: Product used for unknown indication
     Dosage: UNK
     Route: 042
     Dates: start: 20201230, end: 20201230
  6. DOXYLAMINE SUCCINATE [Suspect]
     Active Substance: DOXYLAMINE SUCCINATE
     Indication: Product used for unknown indication
     Dosage: UNK, ONCE A DAY
     Route: 042
     Dates: start: 20201229, end: 20201230
  7. ACETAMINOPHEN [Suspect]
     Active Substance: ACETAMINOPHEN
     Indication: Product used for unknown indication
     Dosage: UNK
     Route: 048
  8. ACETAMINOPHEN [Suspect]
     Active Substance: ACETAMINOPHEN
     Dosage: UNK
     Route: 042
     Dates: start: 20201229, end: 20201230
  9. DOXYLAMINE SUCCINATE [Suspect]
     Active Substance: DOXYLAMINE SUCCINATE
     Indication: Product used for unknown indication
     Dosage: UNK
     Route: 042
     Dates: start: 20201229, end: 20201230
  10. HALOPERIDOL [Suspect]
     Active Substance: HALOPERIDOL
     Indication: Product used for unknown indication
     Dosage: UNK
     Route: 042
     Dates: start: 20201229, end: 20201230
  11. HALOPERIDOL [Suspect]
     Active Substance: HALOPERIDOL
     Dosage: UNK
     Route: 048
     Dates: start: 20201229, end: 20201230
  12. HALDOL [Suspect]
     Active Substance: HALOPERIDOL
     Indication: Product used for unknown indication
     Dosage: UNK
     Route: 042
     Dates: start: 20201229, end: 20201230
  13. RISPERIDONE [Suspect]
     Active Substance: RISPERIDONE
     Indication: Product used for unknown indication
     Dosage: UNK 1 YEAR
     Route: 042
     Dates: start: 20201229, end: 20201230
  14. QUETIAPINE [Suspect]
     Active Substance: QUETIAPINE
     Indication: Product used for unknown indication
     Dosage: UNK, ONCE A DAY
     Route: 048
     Dates: start: 20201230

REACTIONS (5)
  - Dystonia [Recovered/Resolved]
  - Tongue disorder [Recovered/Resolved]
  - Bruxism [Recovered/Resolved]
  - Incorrect route of product administration [Unknown]
  - Off label use [Unknown]

NARRATIVE: CASE EVENT DATE: 20201229
